FAERS Safety Report 5893565-4 (Version None)
Quarter: 2008Q3

REPORT INFORMATION
  Report Type: 
  Country: None (occurrence: None)
  Receive Date: 20080923
  Receipt Date: 20080919
  Transmission Date: 20090109
  Serious: Yes (Hospitalization)
  Sender: FDA-Public Use
  Company Number: JP-ASTRAZENECA-2008AP06861

PATIENT
  Age: 81 Year
  Sex: Male

DRUGS (7)
  1. MEROPENEM [Suspect]
     Indication: PNEUMONIA
     Route: 042
     Dates: start: 20080717, end: 20080720
  2. PLAVIX [Suspect]
     Route: 048
     Dates: start: 20080305, end: 20080722
  3. ASPENON [Concomitant]
     Route: 048
     Dates: end: 20080722
  4. TANATRIL [Concomitant]
     Route: 048
     Dates: end: 20080722
  5. ASPIRIN [Concomitant]
     Route: 048
     Dates: start: 20080305, end: 20080722
  6. FLOMOX [Concomitant]
     Route: 048
     Dates: start: 20080713, end: 20080716
  7. LEBENIN [Concomitant]
     Route: 048
     Dates: start: 20080713, end: 20080716

REACTIONS (1)
  - INTERSTITIAL LUNG DISEASE [None]
